FAERS Safety Report 18019575 (Version 2)
Quarter: 2020Q4

REPORT INFORMATION
  Report Type: Spontaneous
  Country: FR (occurrence: FR)
  Receive Date: 20200714
  Receipt Date: 20201210
  Transmission Date: 20210113
  Serious: Yes (Other)
  Sender: FDA-Public Use
  Company Number: FR-SA-2020SA144648

PATIENT

DRUGS (9)
  1. RIFAMPICIN [Suspect]
     Active Substance: RIFAMPIN
     Dosage: UNK
     Dates: start: 20200518
  2. ISONIAZID. [Suspect]
     Active Substance: ISONIAZID
     Dosage: UNK
     Dates: start: 20200518
  3. ISONIAZID. [Suspect]
     Active Substance: ISONIAZID
     Dosage: UNK
     Dates: start: 20200605
  4. ETHAMBUTOL [Suspect]
     Active Substance: ETHAMBUTOL HYDROCHLORIDE
     Indication: TUBERCULOSIS
     Dosage: 1 DF, 1X
     Route: 048
     Dates: start: 20200508
  5. ETHAMBUTOL [Suspect]
     Active Substance: ETHAMBUTOL HYDROCHLORIDE
     Dosage: UNK
     Dates: start: 20200605
  6. PYRAZINAMIDE. [Suspect]
     Active Substance: PYRAZINAMIDE
     Indication: TUBERCULOSIS
     Dosage: 750 MG, QCY
     Route: 048
     Dates: start: 20200508, end: 20200518
  7. RIFAMPICIN [Suspect]
     Active Substance: RIFAMPIN
     Dosage: UNK
     Dates: start: 20200605
  8. ISONIAZID. [Suspect]
     Active Substance: ISONIAZID
     Indication: TUBERCULOSIS
     Dosage: 1 DF, 1X
     Route: 048
     Dates: start: 20200508
  9. RIFAMPICIN [Suspect]
     Active Substance: RIFAMPIN
     Indication: TUBERCULOSIS
     Dosage: 1 DF, 1X
     Route: 048
     Dates: start: 20200508

REACTIONS (4)
  - Rash maculo-papular [Recovered/Resolved]
  - Abdominal pain [Recovered/Resolved]
  - Anaphylactic shock [Recovered/Resolved]
  - Urticaria [Unknown]

NARRATIVE: CASE EVENT DATE: 20200508
